FAERS Safety Report 13824320 (Version 3)
Quarter: 2017Q3

REPORT INFORMATION
  Report Type: Spontaneous
  Country: US (occurrence: US)
  Receive Date: 20170802
  Receipt Date: 20170911
  Transmission Date: 20171127
  Serious: No
  Sender: FDA-Public Use
  Company Number: US-ASTRAZENECA-2017SE76232

PATIENT
  Age: 21491 Day
  Sex: Female

DRUGS (1)
  1. PULMICORT FLEXHALER [Suspect]
     Active Substance: BUDESONIDE
     Dosage: 180.0UG UNKNOWN
     Route: 055
     Dates: start: 20170710

REACTIONS (3)
  - Device failure [Unknown]
  - Dyspnoea [Unknown]
  - Device failure [Unknown]

NARRATIVE: CASE EVENT DATE: 20170710
